FAERS Safety Report 8900370 (Version 1)
Quarter: 2012Q4

REPORT INFORMATION
  Report Type: 
  Country: US (occurrence: US)
  Receive Date: 20121108
  Receipt Date: 20121108
  Transmission Date: 20130627
  Serious: No
  Sender: FDA-Public Use
  Company Number: US-AMGEN-USASP2012037891

PATIENT
  Sex: Male
  Weight: 90.7 kg

DRUGS (6)
  1. ENBREL [Suspect]
     Indication: PRODUCT USED FOR UNKNOWN INDICATION
     Dosage: 50 mg/ml, 4 Doses/PK
     Route: 058
  2. AMLODIPINE [Concomitant]
     Dosage: 5 mg, UNK
  3. CARVEDILOL [Concomitant]
     Dosage: 12.5 mg, UNK
  4. HYDROCHLOROTH [Concomitant]
     Dosage: 12.5 mg, UNK
  5. PROTOPIC [Concomitant]
     Dosage: 0.1 %, UNK
  6. SULFASALAZIN [Concomitant]
     Dosage: 500 mg, UNK

REACTIONS (1)
  - Gingival recession [Unknown]
